FAERS Safety Report 8508665-X (Version None)
Quarter: 2012Q3

REPORT INFORMATION
  Report Type: 
  Country: None (occurrence: None)
  Receive Date: 20120713
  Receipt Date: 20120709
  Transmission Date: 20120928
  Serious: Yes (Other)
  Sender: FDA-Public Use
  Company Number: NL-PFIZER INC-2012163650

PATIENT
  Sex: Male

DRUGS (2)
  1. SELOKEEN [Concomitant]
     Dosage: UNK
  2. LIPITOR [Suspect]
     Dosage: 20 MG, UNK

REACTIONS (2)
  - MYOCARDIAL INFARCTION [None]
  - DIABETES MELLITUS [None]
